FAERS Safety Report 25084605 (Version 2)
Quarter: 2025Q2

REPORT INFORMATION
  Report Type: Spontaneous
  Country: US (occurrence: US)
  Receive Date: 20250317
  Receipt Date: 20250513
  Transmission Date: 20250717
  Serious: Yes (Other)
  Sender: SANDOZ
  Company Number: US-SANDOZ-SDZ2025US015811

PATIENT
  Sex: Female

DRUGS (1)
  1. BRINZOLAMIDE [Suspect]
     Active Substance: BRINZOLAMIDE
     Indication: Dry eye
     Route: 065

REACTIONS (4)
  - Blindness transient [Unknown]
  - Product dose omission issue [Unknown]
  - Product quality issue [Unknown]
  - Product leakage [Unknown]
